FAERS Safety Report 11417184 (Version 1)
Quarter: 2015Q3

REPORT INFORMATION
  Report Type: Spontaneous
  Country: US (occurrence: US)
  Receive Date: 20150825
  Receipt Date: 20150825
  Transmission Date: 20151125
  Serious: No
  Sender: FDA-Public Use
  Company Number: US-MYLANLABS-2015M1021245

PATIENT
  Age: 78 Year
  Sex: Female
  Weight: 43.84 kg

DRUGS (7)
  1. PAROXETINE HYDROCHLORIDE CONTROLLED-RELEASE [Suspect]
     Active Substance: PAROXETINE HYDROCHLORIDE
     Indication: BLOOD PRESSURE INCREASED
     Dosage: 12.5 MG, QD
     Route: 048
     Dates: start: 201411
  2. XANAX [Concomitant]
     Active Substance: ALPRAZOLAM
     Dosage: UNK
  3. NICARDIPINE HYDROCHLORIDE CAPSULES [Suspect]
     Active Substance: NICARDIPINE HYDROCHLORIDE
     Dosage: 20 MG, TID
     Route: 048
  4. CLONIDINE. [Concomitant]
     Active Substance: CLONIDINE
     Indication: HYPERTENSION
     Dosage: UNK
  5. NICARDIPINE HYDROCHLORIDE CAPSULES [Suspect]
     Active Substance: NICARDIPINE HYDROCHLORIDE
     Dosage: 20 MG, QID
     Route: 048
     Dates: start: 201411
  6. AMBIEN [Concomitant]
     Active Substance: ZOLPIDEM TARTRATE
     Dosage: UNK
  7. PAROXETINE HYDROCHLORIDE CONTROLLED-RELEASE [Suspect]
     Active Substance: PAROXETINE HYDROCHLORIDE
     Indication: CARDIAC FLUTTER

REACTIONS (8)
  - Blood pressure increased [Not Recovered/Not Resolved]
  - Palpitations [Not Recovered/Not Resolved]
  - Rash pruritic [Not Recovered/Not Resolved]
  - Drug interaction [Not Recovered/Not Resolved]
  - Hypersensitivity [Not Recovered/Not Resolved]
  - Weight decreased [Not Recovered/Not Resolved]
  - Burning sensation [Not Recovered/Not Resolved]
  - Tremor [Recovered/Resolved]

NARRATIVE: CASE EVENT DATE: 201411
